FAERS Safety Report 18714522 (Version 32)
Quarter: 2025Q3

REPORT INFORMATION
  Report Type: Spontaneous
  Country: CA (occurrence: CA)
  Receive Date: 20210107
  Receipt Date: 20250809
  Transmission Date: 20251021
  Serious: Yes (Hospitalization, Disabling, Congenital Anomaly, Other)
  Sender: ALEXION PHARMACEUTICALS
  Company Number: 2021A001736

PATIENT
  Age: 80 Year
  Sex: Male
  Weight: 89 kg

DRUGS (171)
  1. FLUMIST [Suspect]
     Active Substance: INFLUENZA A VIRUS A/CALIFORNIA/7/2009 (H1N1) LIVE(ATTENUATED) ANTIGEN\INFLUENZA A VIRUS A/PERTH/16/2
     Indication: Immunisation
     Route: 065
  2. FLUMIST [Suspect]
     Active Substance: INFLUENZA A VIRUS A/CALIFORNIA/7/2009 (H1N1) LIVE(ATTENUATED) ANTIGEN\INFLUENZA A VIRUS A/PERTH/16/2
     Indication: Prophylaxis
  3. FLUMIST QUADRIVALENT [Suspect]
     Active Substance: INFLUENZA A VIRUS A/CALIFORNIA/7/2009 (H1N1) LIVE(ATTENUATED) ANTIGEN\INFLUENZA A VIRUS A/TEXAS/50/2
     Indication: Prophylaxis
  4. BUDESONIDE [Suspect]
     Active Substance: BUDESONIDE
     Indication: Asthma
     Route: 065
  5. INFLUENZA VIRUS VACCINE [Suspect]
     Active Substance: INFLUENZA VIRUS VACCINE
     Indication: Prophylaxis
     Route: 065
  6. INFLUENZA VIRUS VACCINE [Suspect]
     Active Substance: INFLUENZA VIRUS VACCINE
     Indication: Immunisation
  7. ROSUVASTATIN [Suspect]
     Active Substance: ROSUVASTATIN
     Route: 065
  8. SYMBICORT [Suspect]
     Active Substance: BUDESONIDE\FORMOTEROL FUMARATE DIHYDRATE
     Indication: Asthma
     Dosage: 2 DF TWO TIMES A DAY
  9. SYMBICORT [Suspect]
     Active Substance: BUDESONIDE\FORMOTEROL FUMARATE DIHYDRATE
  10. SYMBICORT [Suspect]
     Active Substance: BUDESONIDE\FORMOTEROL FUMARATE DIHYDRATE
  11. SYMBICORT [Suspect]
     Active Substance: BUDESONIDE\FORMOTEROL FUMARATE DIHYDRATE
  12. SYMBICORT [Suspect]
     Active Substance: BUDESONIDE\FORMOTEROL FUMARATE DIHYDRATE
  13. SYMBICORT [Suspect]
     Active Substance: BUDESONIDE\FORMOTEROL FUMARATE DIHYDRATE
  14. SYMBICORT [Suspect]
     Active Substance: BUDESONIDE\FORMOTEROL FUMARATE DIHYDRATE
  15. CICLESONIDE [Suspect]
     Active Substance: CICLESONIDE
     Indication: Product used for unknown indication
  16. ACLIDINIUM BROMIDE\FORMOTEROL FUMARATE [Suspect]
     Active Substance: ACLIDINIUM BROMIDE\FORMOTEROL FUMARATE
     Indication: Product used for unknown indication
  17. ACLIDINIUM BROMIDE\FORMOTEROL FUMARATE [Suspect]
     Active Substance: ACLIDINIUM BROMIDE\FORMOTEROL FUMARATE
  18. ACLIDINIUM BROMIDE\FORMOTEROL FUMARATE [Suspect]
     Active Substance: ACLIDINIUM BROMIDE\FORMOTEROL FUMARATE
  19. ACLIDINIUM BROMIDE\FORMOTEROL FUMARATE [Suspect]
     Active Substance: ACLIDINIUM BROMIDE\FORMOTEROL FUMARATE
  20. ACLIDINIUM BROMIDE\FORMOTEROL FUMARATE [Suspect]
     Active Substance: ACLIDINIUM BROMIDE\FORMOTEROL FUMARATE
  21. ACLIDINIUM BROMIDE\FORMOTEROL FUMARATE [Suspect]
     Active Substance: ACLIDINIUM BROMIDE\FORMOTEROL FUMARATE
  22. ACLIDINIUM BROMIDE\FORMOTEROL FUMARATE [Suspect]
     Active Substance: ACLIDINIUM BROMIDE\FORMOTEROL FUMARATE
  23. ACLIDINIUM BROMIDE\FORMOTEROL FUMARATE [Suspect]
     Active Substance: ACLIDINIUM BROMIDE\FORMOTEROL FUMARATE
  24. ALVESCO [Suspect]
     Active Substance: CICLESONIDE
     Indication: Product used for unknown indication
  25. ALVESCO [Suspect]
     Active Substance: CICLESONIDE
  26. ACLIDINIUM BROMIDE\FORMOTEROL FUMARATE [Suspect]
     Active Substance: ACLIDINIUM BROMIDE\FORMOTEROL FUMARATE
     Indication: Asthma
  27. ACLIDINIUM BROMIDE\FORMOTEROL FUMARATE [Suspect]
     Active Substance: ACLIDINIUM BROMIDE\FORMOTEROL FUMARATE
  28. ACLIDINIUM BROMIDE\FORMOTEROL FUMARATE [Suspect]
     Active Substance: ACLIDINIUM BROMIDE\FORMOTEROL FUMARATE
  29. RAMIPRIL [Suspect]
     Active Substance: RAMIPRIL
     Indication: Asthma
  30. RAMIPRIL [Suspect]
     Active Substance: RAMIPRIL
     Indication: Prophylaxis
  31. RAMIPRIL [Suspect]
     Active Substance: RAMIPRIL
  32. RAMIPRIL [Suspect]
     Active Substance: RAMIPRIL
  33. RAMIPRIL [Suspect]
     Active Substance: RAMIPRIL
  34. RAMIPRIL [Suspect]
     Active Substance: RAMIPRIL
  35. RAMIPRIL [Suspect]
     Active Substance: RAMIPRIL
  36. RAMIPRIL [Suspect]
     Active Substance: RAMIPRIL
  37. RAMIPRIL [Suspect]
     Active Substance: RAMIPRIL
  38. RAMIPRIL [Suspect]
     Active Substance: RAMIPRIL
  39. ACLIDINIUM BROMIDE [Suspect]
     Active Substance: ACLIDINIUM BROMIDE
     Indication: Product used for unknown indication
  40. BUDESONIDE\FORMOTEROL FUMARATE [Suspect]
     Active Substance: BUDESONIDE\FORMOTEROL FUMARATE
     Indication: Asthma
     Route: 065
  41. BUDESONIDE\FORMOTEROL FUMARATE [Suspect]
     Active Substance: BUDESONIDE\FORMOTEROL FUMARATE
     Dosage: 2 DOSAGE FORM, Q12H 12 - EVERY HOUR, EVERY 12 HOURS
  42. BUDESONIDE\FORMOTEROL FUMARATE [Suspect]
     Active Substance: BUDESONIDE\FORMOTEROL FUMARATE
     Route: 065
  43. BUDESONIDE\FORMOTEROL FUMARATE [Suspect]
     Active Substance: BUDESONIDE\FORMOTEROL FUMARATE
  44. BUDESONIDE\FORMOTEROL FUMARATE [Suspect]
     Active Substance: BUDESONIDE\FORMOTEROL FUMARATE
     Route: 065
  45. BUDESONIDE\FORMOTEROL FUMARATE [Suspect]
     Active Substance: BUDESONIDE\FORMOTEROL FUMARATE
     Dosage: 2 DOSAGE FORM, Q12H
  46. BUDESONIDE\FORMOTEROL FUMARATE [Suspect]
     Active Substance: BUDESONIDE\FORMOTEROL FUMARATE
     Dosage: 4 DOSAGE FORM, Q12H
  47. BUDESONIDE\FORMOTEROL FUMARATE [Suspect]
     Active Substance: BUDESONIDE\FORMOTEROL FUMARATE
  48. BUDESONIDE\FORMOTEROL FUMARATE [Suspect]
     Active Substance: BUDESONIDE\FORMOTEROL FUMARATE
     Route: 065
  49. BUDESONIDE\FORMOTEROL FUMARATE [Suspect]
     Active Substance: BUDESONIDE\FORMOTEROL FUMARATE
     Route: 065
  50. ALBUTEROL [Suspect]
     Active Substance: ALBUTEROL
     Indication: Prophylaxis
  51. ASPIRIN [Suspect]
     Active Substance: ASPIRIN
     Indication: Product used for unknown indication
  52. ASPIRIN [Suspect]
     Active Substance: ASPIRIN
  53. ASPIRIN [Suspect]
     Active Substance: ASPIRIN
  54. AMLODIPINE [Suspect]
     Active Substance: AMLODIPINE BESYLATE
     Indication: Product used for unknown indication
  55. AMLODIPINE [Suspect]
     Active Substance: AMLODIPINE BESYLATE
  56. AMLODIPINE [Suspect]
     Active Substance: AMLODIPINE BESYLATE
  57. AMLODIPINE [Suspect]
     Active Substance: AMLODIPINE BESYLATE
  58. ACETYLCYSTEINE [Suspect]
     Active Substance: ACETYLCYSTEINE
     Indication: Product used for unknown indication
  59. ACETYLCYSTEINE [Suspect]
     Active Substance: ACETYLCYSTEINE
  60. ACETYLCYSTEINE [Suspect]
     Active Substance: ACETYLCYSTEINE
  61. ACETYLCYSTEINE [Suspect]
     Active Substance: ACETYLCYSTEINE
  62. ACETYLCYSTEINE [Suspect]
     Active Substance: ACETYLCYSTEINE
  63. AZITHROMYCIN [Suspect]
     Active Substance: AZITHROMYCIN
     Indication: Product used for unknown indication
  64. AZITHROMYCIN [Suspect]
     Active Substance: AZITHROMYCIN
  65. AZITHROMYCIN [Suspect]
     Active Substance: AZITHROMYCIN
  66. AZITHROMYCIN [Suspect]
     Active Substance: AZITHROMYCIN
  67. AZITHROMYCIN [Suspect]
     Active Substance: AZITHROMYCIN
  68. AZITHROMYCIN [Suspect]
     Active Substance: AZITHROMYCIN
  69. AZITHROMYCIN [Suspect]
     Active Substance: AZITHROMYCIN
  70. AZITHROMYCIN [Suspect]
     Active Substance: AZITHROMYCIN
  71. DOXYCYCLINE [Suspect]
     Active Substance: DOXYCYCLINE
     Indication: Product used for unknown indication
  72. DOXYCYCLINE [Suspect]
     Active Substance: DOXYCYCLINE
  73. DOXYCYCLINE [Suspect]
     Active Substance: DOXYCYCLINE
  74. DOXYCYCLINE [Suspect]
     Active Substance: DOXYCYCLINE
  75. DOXYCYCLINE [Suspect]
     Active Substance: DOXYCYCLINE
  76. DOXYCYCLINE [Suspect]
     Active Substance: DOXYCYCLINE
  77. DOXYCYCLINE [Suspect]
     Active Substance: DOXYCYCLINE
  78. DOXYCYCLINE [Suspect]
     Active Substance: DOXYCYCLINE
  79. LEVOFLOXACIN [Suspect]
     Active Substance: LEVOFLOXACIN
     Indication: Product used for unknown indication
  80. LEVOFLOXACIN [Suspect]
     Active Substance: LEVOFLOXACIN
  81. LYRICA [Suspect]
     Active Substance: PREGABALIN
     Indication: Product used for unknown indication
  82. LYRICA [Suspect]
     Active Substance: PREGABALIN
  83. LYRICA [Suspect]
     Active Substance: PREGABALIN
  84. LYRICA [Suspect]
     Active Substance: PREGABALIN
  85. LYRICA [Suspect]
     Active Substance: PREGABALIN
  86. LYRICA [Suspect]
     Active Substance: PREGABALIN
  87. LYRICA [Suspect]
     Active Substance: PREGABALIN
  88. MELATONIN [Suspect]
     Active Substance: MELATONIN
     Indication: Product used for unknown indication
  89. MELATONIN [Suspect]
     Active Substance: MELATONIN
  90. NAPROXEN [Suspect]
     Active Substance: NAPROXEN
     Indication: Product used for unknown indication
  91. NAPROXEN [Suspect]
     Active Substance: NAPROXEN
  92. NAPROXEN [Suspect]
     Active Substance: NAPROXEN
  93. NAPROXEN [Suspect]
     Active Substance: NAPROXEN
  94. NAPROXEN [Suspect]
     Active Substance: NAPROXEN
  95. NAPROXEN [Suspect]
     Active Substance: NAPROXEN
  96. NAPROXEN [Suspect]
     Active Substance: NAPROXEN
  97. NAPROXEN [Suspect]
     Active Substance: NAPROXEN
  98. NAPROXEN [Suspect]
     Active Substance: NAPROXEN
  99. NAPROXEN [Suspect]
     Active Substance: NAPROXEN
  100. NAPROXEN [Suspect]
     Active Substance: NAPROXEN
  101. NAPROXEN [Suspect]
     Active Substance: NAPROXEN
  102. NAPROXEN [Suspect]
     Active Substance: NAPROXEN
  103. PREDNISONE [Suspect]
     Active Substance: PREDNISONE
     Indication: Asthma
  104. PREDNISONE [Suspect]
     Active Substance: PREDNISONE
  105. PREDNISONE [Suspect]
     Active Substance: PREDNISONE
  106. PREDNISONE [Suspect]
     Active Substance: PREDNISONE
  107. PREDNISONE [Suspect]
     Active Substance: PREDNISONE
  108. PREDNISONE [Suspect]
     Active Substance: PREDNISONE
  109. PREDNISONE [Suspect]
     Active Substance: PREDNISONE
  110. PREDNISONE [Suspect]
     Active Substance: PREDNISONE
  111. PREDNISONE [Suspect]
     Active Substance: PREDNISONE
  112. PREGABALIN [Suspect]
     Active Substance: PREGABALIN
     Indication: Product used for unknown indication
  113. PREGABALIN [Suspect]
     Active Substance: PREGABALIN
  114. PREGABALIN [Suspect]
     Active Substance: PREGABALIN
  115. PREGABALIN [Suspect]
     Active Substance: PREGABALIN
  116. PREGABALIN [Suspect]
     Active Substance: PREGABALIN
  117. PREGABALIN [Suspect]
     Active Substance: PREGABALIN
  118. ALBUTEROL SULFATE [Suspect]
     Active Substance: ALBUTEROL SULFATE
     Indication: Asthma
  119. ALBUTEROL SULFATE [Suspect]
     Active Substance: ALBUTEROL SULFATE
  120. ALBUTEROL SULFATE [Suspect]
     Active Substance: ALBUTEROL SULFATE
  121. SPIRIVA [Suspect]
     Active Substance: TIOTROPIUM BROMIDE MONOHYDRATE
     Indication: Asthma
     Dosage: 1 DOSAGE FORM, QD
  122. SPIRIVA [Suspect]
     Active Substance: TIOTROPIUM BROMIDE MONOHYDRATE
  123. SPIRIVA [Suspect]
     Active Substance: TIOTROPIUM BROMIDE MONOHYDRATE
  124. SPIRIVA [Suspect]
     Active Substance: TIOTROPIUM BROMIDE MONOHYDRATE
  125. SPIRIVA [Suspect]
     Active Substance: TIOTROPIUM BROMIDE MONOHYDRATE
  126. ALBUTEROL SULFATE [Suspect]
     Active Substance: ALBUTEROL SULFATE
     Indication: Asthma
  127. ALBUTEROL SULFATE [Suspect]
     Active Substance: ALBUTEROL SULFATE
  128. ALBUTEROL SULFATE [Suspect]
     Active Substance: ALBUTEROL SULFATE
  129. FLOMAX [Suspect]
     Active Substance: TAMSULOSIN HYDROCHLORIDE
     Indication: Product used for unknown indication
  130. FLOMAX [Suspect]
     Active Substance: TAMSULOSIN HYDROCHLORIDE
     Indication: Product used for unknown indication
  131. FLOMAX [Suspect]
     Active Substance: TAMSULOSIN HYDROCHLORIDE
  132. FLOMAX [Suspect]
     Active Substance: TAMSULOSIN HYDROCHLORIDE
  133. FLOMAX [Suspect]
     Active Substance: TAMSULOSIN HYDROCHLORIDE
  134. FLOMAX [Suspect]
     Active Substance: TAMSULOSIN HYDROCHLORIDE
  135. FLOMAX [Suspect]
     Active Substance: TAMSULOSIN HYDROCHLORIDE
  136. FLOMAX [Suspect]
     Active Substance: TAMSULOSIN HYDROCHLORIDE
  137. FLOMAX [Suspect]
     Active Substance: TAMSULOSIN HYDROCHLORIDE
  138. TAMSULOSIN [Suspect]
     Active Substance: TAMSULOSIN
     Indication: Product used for unknown indication
  139. ASACOL [Suspect]
     Active Substance: MESALAMINE
     Indication: Product used for unknown indication
  140. ASACOL [Suspect]
     Active Substance: MESALAMINE
  141. PREVNAR 13 [Suspect]
     Active Substance: STREPTOCOCCUS PNEUMONIAE TYPE 1 CAPSULAR POLYSACCHARIDE DIPHTHERIA CRM197 PROTEIN CONJUGATE ANTIGEN\
     Indication: Prophylaxis
  142. PNEUMOCOCCAL 13-VALENT CONJUGATE VACCINE [Suspect]
     Active Substance: PNEUMOCOCCAL 13-VALENT CONJUGATE VACCINE
     Indication: Prophylaxis
  143. MESALAMINE [Suspect]
     Active Substance: MESALAMINE
     Indication: Product used for unknown indication
  144. PANTOPRAZOLE [Suspect]
     Active Substance: PANTOPRAZOLE
     Indication: Product used for unknown indication
  145. PANTOPRAZOLE [Suspect]
     Active Substance: PANTOPRAZOLE
  146. PANTOPRAZOLE [Suspect]
     Active Substance: PANTOPRAZOLE
  147. PANTOPRAZOLE [Suspect]
     Active Substance: PANTOPRAZOLE
  148. PANTOPRAZOLE [Suspect]
     Active Substance: PANTOPRAZOLE
  149. DOXYCYCLINE HYCLATE [Suspect]
     Active Substance: DOXYCYCLINE HYCLATE
     Indication: Product used for unknown indication
  150. DOXYCYCLINE HYCLATE [Suspect]
     Active Substance: DOXYCYCLINE HYCLATE
  151. NAPROXEN SODIUM [Suspect]
     Active Substance: NAPROXEN SODIUM
     Indication: Product used for unknown indication
  152. NAPROXEN SODIUM [Suspect]
     Active Substance: NAPROXEN SODIUM
  153. AMLODIPINE MALEATE [Suspect]
     Active Substance: AMLODIPINE MALEATE
     Indication: Product used for unknown indication
  154. AMLODIPINE MALEATE [Suspect]
     Active Substance: AMLODIPINE MALEATE
  155. AZITHROMYCIN DIHYDRATE [Suspect]
     Active Substance: AZITHROMYCIN DIHYDRATE
     Indication: Product used for unknown indication
  156. LEVOFLOXACIN HEMIHYDRATE [Suspect]
     Active Substance: LEVOFLOXACIN
     Indication: Product used for unknown indication
  157. LEVOFLOXACIN HEMIHYDRATE [Suspect]
     Active Substance: LEVOFLOXACIN
  158. LEVOFLOXACIN HEMIHYDRATE [Suspect]
     Active Substance: LEVOFLOXACIN
  159. AMLODIPINE BESYLATE [Suspect]
     Active Substance: AMLODIPINE BESYLATE
     Indication: Product used for unknown indication
  160. MORNIFLUMATE [Suspect]
     Active Substance: MORNIFLUMATE
  161. LEVOFLOXACIN [Suspect]
     Active Substance: LEVOFLOXACIN
  162. ACLIDINIUM BROMIDE [Suspect]
     Active Substance: ACLIDINIUM BROMIDE
     Indication: Asthma
  163. PNEUMOCOCCAL 7-VALENT CONJUGATE VACCINE (DIPHTHERIA CRM197 PROTEIN) [Suspect]
     Active Substance: PNEUMOCOCCAL 7-VALENT CONJUGATE VACCINE (DIPHTHERIA CRM197 PROTEIN)
     Indication: Prophylaxis
  164. TIOTROPIUM BROMIDE MONOHYDRATE [Suspect]
     Active Substance: TIOTROPIUM BROMIDE MONOHYDRATE
     Indication: Asthma
     Dosage: UNK UNK, QD
  165. TIOTROPIUM BROMIDE MONOHYDRATE [Suspect]
     Active Substance: TIOTROPIUM BROMIDE MONOHYDRATE
     Dosage: UNK UNK, QD
  166. TIOTROPIUM BROMIDE MONOHYDRATE [Suspect]
     Active Substance: TIOTROPIUM BROMIDE MONOHYDRATE
     Dosage: UNK UNK, QD
  167. TAMSULOSIN HYDROCHLORIDE [Suspect]
     Active Substance: TAMSULOSIN HYDROCHLORIDE
     Indication: Product used for unknown indication
  168. SODIUM SULFATE ANHYDROUS [Suspect]
     Active Substance: SODIUM SULFATE ANHYDROUS
     Indication: Product used for unknown indication
  169. FINASTERIDE [Suspect]
     Active Substance: FINASTERIDE
     Indication: Product used for unknown indication
  170. TADALAFIL [Suspect]
     Active Substance: TADALAFIL
     Indication: Product used for unknown indication
  171. ASPIRIN [Suspect]
     Active Substance: ASPIRIN
     Indication: Product used for unknown indication

REACTIONS (28)
  - Asthma [Unknown]
  - Benign prostatic hyperplasia [Unknown]
  - Breath sounds abnormal [Unknown]
  - Bronchiectasis [Unknown]
  - Chronic obstructive pulmonary disease [Unknown]
  - Congenital hiatus hernia [Unknown]
  - Coronary artery disease [Unknown]
  - Dyspnoea [Unknown]
  - Dyspnoea exertional [Unknown]
  - Full blood count abnormal [Unknown]
  - Gastrooesophageal reflux disease [Unknown]
  - Gastrooesophageal reflux disease [Unknown]
  - Hypercholesterolaemia [Unknown]
  - Hypertension [Unknown]
  - Joint injury [Unknown]
  - Joint injury [Unknown]
  - Loss of personal independence in daily activities [Unknown]
  - Malignant melanoma stage 0 [Unknown]
  - Micturition urgency [Unknown]
  - Micturition urgency [Unknown]
  - Obstructive airways disorder [Unknown]
  - Off label use [Unknown]
  - Product administered to patient of inappropriate age [Unknown]
  - Productive cough [Unknown]
  - Therapeutic product effect incomplete [Unknown]
  - Transient ischaemic attack [Unknown]
  - Wheezing [Unknown]
  - Drug ineffective [Unknown]
